FAERS Safety Report 10403816 (Version 1)
Quarter: 2014Q3

REPORT INFORMATION
  Report Type: Spontaneous
  Country: BR (occurrence: BR)
  Receive Date: 20140822
  Receipt Date: 20140822
  Transmission Date: 20150326
  Serious: Yes (Other)
  Sender: FDA-Public Use
  Company Number: BR-BAXTER-2014BAX048812

PATIENT
  Sex: Female

DRUGS (2)
  1. ENDOBULIN [Suspect]
     Active Substance: HUMAN IMMUNOGLOBULIN G
     Indication: HAEMOLYTIC URAEMIC SYNDROME
     Route: 065
  2. RITUXIMAB [Suspect]
     Active Substance: RITUXIMAB
     Indication: HAEMOLYTIC URAEMIC SYNDROME
     Route: 065

REACTIONS (1)
  - Drug ineffective [Not Recovered/Not Resolved]
